FAERS Safety Report 7480859-4 (Version None)
Quarter: 2011Q2

REPORT INFORMATION
  Report Type: 
  Country: None (occurrence: None)
  Receive Date: 20110516
  Receipt Date: 20110502
  Transmission Date: 20111010
  Serious: Yes (Hospitalization, Other)
  Sender: FDA-Public Use
  Company Number: PHHY2011DE40058

PATIENT
  Age: 30 Year
  Sex: Female

DRUGS (1)
  1. METHERGINE [Suspect]
     Dosage: 25 DRP, TID
     Route: 048
     Dates: start: 20110401, end: 20110401

REACTIONS (1)
  - EPILEPSY [None]
